FAERS Safety Report 4339758-9 (Version None)
Quarter: 2004Q2

REPORT INFORMATION
  Report Type: 
  Country: None (occurrence: None)
  Receive Date: 20040415
  Receipt Date: 20040415
  Transmission Date: 20050107
  Serious: Yes (Other)
  Sender: FDA-Public Use
  Company Number: None

PATIENT
  Age: 33 Year
  Sex: Female
  Weight: 92.9874 kg

DRUGS (1)
  1. NUVARING [Suspect]
     Indication: HORMONE REPLACEMENT THERAPY
     Dosage: VAGINAL
     Route: 067

REACTIONS (4)
  - BLADDER PROLAPSE [None]
  - DYSSTASIA [None]
  - MUSCLE CRAMP [None]
  - PAIN [None]
